FAERS Safety Report 8584235-2 (Version None)
Quarter: 2012Q3

REPORT INFORMATION
  Report Type: 
  Country: None (occurrence: None)
  Receive Date: 20120810
  Receipt Date: 20120730
  Transmission Date: 20120928
  Serious: Yes (Death, Hospitalization)
  Sender: FDA-Public Use
  Company Number: FR-BRISTOL-MYERS SQUIBB COMPANY-16828311

PATIENT
  Age: 87 Year
  Sex: Female

DRUGS (9)
  1. COUMADIN [Suspect]
     Route: 048
  2. ADANCOR [Concomitant]
  3. DURAGESIC-100 [Concomitant]
  4. LEVOTHYROXINE SODIUM [Concomitant]
  5. CITALOPRAM HYDROBROMIDE [Concomitant]
  6. SPIRONOLACTONE [Concomitant]
  7. ACETAMINOPHEN [Concomitant]
  8. ATENOLOL [Suspect]
  9. LASIX [Concomitant]

REACTIONS (5)
  - BRADYCARDIA [None]
  - RENAL FAILURE ACUTE [None]
  - DEHYDRATION [None]
  - ACCIDENTAL OVERDOSE [None]
  - INTERNATIONAL NORMALISED RATIO INCREASED [None]
